APPROVED DRUG PRODUCT: FREAMINE HBC 6.9%
Active Ingredient: AMINO ACIDS
Strength: 6.9% (6.9GM/100ML)
Dosage Form/Route: INJECTABLE;INJECTION
Application: N016822 | Product #006
Applicant: B BRAUN MEDICAL INC
Approved: May 17, 1983 | RLD: No | RS: No | Type: DISCN